FAERS Safety Report 15591621 (Version 1)
Quarter: 2018Q4

REPORT INFORMATION
  Report Type: Spontaneous
  Country: JP (occurrence: JP)
  Receive Date: 20181107
  Receipt Date: 20181107
  Transmission Date: 20190205
  Serious: Yes (Hospitalization)
  Sender: FDA-Public Use
  Company Number: JP-PFIZER INC-2018443152

PATIENT
  Age: 50 Year
  Sex: Female

DRUGS (3)
  1. CALONAL [Concomitant]
     Active Substance: ACETAMINOPHEN
     Dosage: 2 DF, AS NEEDED
  2. CEFTRIAXONE SODIUM 0.5G PFIZER [Suspect]
     Active Substance: CEFTRIAXONE SODIUM
     Indication: PYELONEPHRITIS
     Dosage: 2 G, DAILY
     Route: 041
     Dates: start: 20181003, end: 20181004
  3. LEVOFLOXACIN. [Suspect]
     Active Substance: LEVOFLOXACIN
     Indication: PYELONEPHRITIS
     Dosage: 500 MG, DAILY
     Route: 048
     Dates: start: 20181004, end: 20181007

REACTIONS (4)
  - Choreoathetosis [Unknown]
  - Altered state of consciousness [Unknown]
  - Erythema [Unknown]
  - Encephalitis [Unknown]

NARRATIVE: CASE EVENT DATE: 201810
